FAERS Safety Report 4673037-5 (Version None)
Quarter: 2005Q2

REPORT INFORMATION
  Report Type: 
  Country: None (occurrence: None)
  Receive Date: 20050523
  Receipt Date: 20050505
  Transmission Date: 20051028
  Serious: Yes (Other)
  Sender: FDA-Public Use
  Company Number: 2005-00928

PATIENT
  Age: 64 Year
  Sex: Male
  Weight: 89 kg

DRUGS (5)
  1. VELCADE [Suspect]
     Indication: MULTIPLE MYELOMA
     Dosage: 2.60 MG, UNK, INTRAVENOUS
     Route: 042
     Dates: start: 20050408, end: 20050418
  2. DEXAMETHASONE [Suspect]
     Dosage: 40.00 MG, UNK
     Route: 065
  3. BONEFOS (CLODRONATE DISODIUM) [Concomitant]
  4. MXL (MORPHINE SULFATE) [Concomitant]
  5. LANSOPRAZOLE [Concomitant]

REACTIONS (4)
  - ALANINE AMINOTRANSFERASE INCREASED [None]
  - BLOOD ALKALINE PHOSPHATASE INCREASED [None]
  - BLOOD BILIRUBIN INCREASED [None]
  - GAMMA-GLUTAMYLTRANSFERASE INCREASED [None]
